FAERS Safety Report 11235653 (Version 2)
Quarter: 2015Q3

REPORT INFORMATION
  Report Type: Spontaneous
  Country: US (occurrence: US)
  Receive Date: 20150702
  Receipt Date: 20150805
  Transmission Date: 20151125
  Serious: Yes (Death, Hospitalization)
  Sender: FDA-Public Use
  Company Number: US-JNJFOC-20150605528

PATIENT
  Sex: Male

DRUGS (2)
  1. VICODIN [Concomitant]
     Active Substance: ACETAMINOPHEN\HYDROCODONE BITARTRATE
  2. IMBRUVICA [Suspect]
     Active Substance: IBRUTINIB
     Indication: SARCOMA
     Route: 048
     Dates: start: 20140101

REACTIONS (4)
  - Cystitis [Recovering/Resolving]
  - Death [Fatal]
  - Staphylococcal infection [Recovering/Resolving]
  - Headache [Unknown]
